FAERS Safety Report 6965102-4 (Version None)
Quarter: 2010Q3

REPORT INFORMATION
  Report Type: 
  Country: None (occurrence: None)
  Receive Date: 20100903
  Receipt Date: 20100830
  Transmission Date: 20110219
  Serious: Yes (Hospitalization)
  Sender: FDA-Public Use
  Company Number: US-SANOFI-AVENTIS-2010SA042589

PATIENT
  Age: 35 Year
  Sex: Female

DRUGS (4)
  1. SOLOSTAR [Suspect]
     Indication: TYPE 1 DIABETES MELLITUS
     Dates: start: 20080101
  2. SOLOSTAR [Suspect]
     Dates: start: 20080101
  3. LANTUS [Suspect]
     Indication: TYPE 1 DIABETES MELLITUS
     Dosage: DOSE:14 UNIT(S)
     Route: 058
     Dates: start: 20020101
  4. LANTUS [Suspect]
     Dosage: DOSE:14 UNIT(S)
     Route: 058
     Dates: start: 20020101

REACTIONS (6)
  - DEHYDRATION [None]
  - DIABETIC KETOACIDOSIS [None]
  - DRUG INEFFECTIVE [None]
  - HYPERGLYCAEMIA [None]
  - PAIN [None]
  - POLLAKIURIA [None]
